FAERS Safety Report 12257477 (Version 1)
Quarter: 2016Q2

REPORT INFORMATION
  Report Type: Spontaneous
  Country: US (occurrence: US)
  Receive Date: 20160412
  Receipt Date: 20160412
  Transmission Date: 20160815
  Serious: No
  Sender: FDA-Public Use
  Company Number: US-GILEAD-2016-0207977

PATIENT
  Age: 50 Year
  Sex: Female

DRUGS (1)
  1. HARVONI [Suspect]
     Active Substance: LEDIPASVIR\SOFOSBUVIR
     Indication: PRODUCT USED FOR UNKNOWN INDICATION
     Dosage: UNK
     Route: 065
     Dates: start: 201602

REACTIONS (8)
  - Asthma [Unknown]
  - Unevaluable event [Unknown]
  - Sleep disorder [Unknown]
  - Nausea [Unknown]
  - Abdominal rigidity [Unknown]
  - Abdominal pain [Unknown]
  - Vomiting [Unknown]
  - Oesophageal pain [Unknown]

NARRATIVE: CASE EVENT DATE: 201603
